FAERS Safety Report 7396685-0 (Version None)
Quarter: 2011Q2

REPORT INFORMATION
  Report Type: 
  Country: None (occurrence: None)
  Receive Date: 20110406
  Receipt Date: 20110325
  Transmission Date: 20111010
  Serious: Yes (Hospitalization)
  Sender: FDA-Public Use
  Company Number: FR-ROCHE-729469

PATIENT
  Sex: Female
  Weight: 51 kg

DRUGS (31)
  1. AMLODIPINE BESYLATE [Concomitant]
     Dosage: FREQUENCY REPORTED AS QD.
     Route: 048
     Dates: start: 20100517
  2. LEXOMIL [Concomitant]
     Route: 048
     Dates: start: 20100923
  3. FORLAX [Concomitant]
     Route: 048
     Dates: start: 20101001
  4. PHOSPHONEUROS [Concomitant]
     Route: 048
     Dates: start: 20100525
  5. BICARBONATE DE SODIUM [Concomitant]
     Route: 048
     Dates: start: 20100702
  6. INSULATARD [Concomitant]
     Dosage: TDD: 20+9 IU
     Dates: start: 20100703, end: 20100806
  7. LANTUS [Concomitant]
     Dosage: REPORTED AS QD.
     Route: 058
     Dates: start: 20100907, end: 20101001
  8. PROGRAF [Concomitant]
     Route: 048
     Dates: start: 20100924
  9. FORLAX [Concomitant]
     Dosage: DRUG REPORTED AS PORLAX QD AS NEEDED.
     Route: 048
  10. CORTANCYL [Suspect]
     Dosage: LAST DOSE PRIOR TO SAE: 8 SEP 2010
     Route: 048
     Dates: start: 20100518
  11. INIPOMP [Concomitant]
     Route: 048
     Dates: start: 20100515
  12. CIFLOX [Concomitant]
     Dates: start: 20100628, end: 20100718
  13. CERTICAN [Suspect]
     Dosage: ROUTE REPORTED AS PER OS. LAST DOSE PRIOR TO SAE 23 SEP 2010.
     Route: 048
     Dates: start: 20100516
  14. ROVALCYTE [Concomitant]
     Dosage: TEMPORARILY DISCONTINUED FROM 28 JUN TO 05 JULY 2010
     Route: 048
     Dates: start: 20100521, end: 20100628
  15. ROVALCYTE [Concomitant]
     Route: 048
     Dates: start: 20100706
  16. NOVORAPID [Concomitant]
     Dosage: TDD: 8+8+8 IU
     Route: 058
     Dates: start: 20100628
  17. TAZOCILLINE [Concomitant]
     Dates: start: 20100628, end: 20100719
  18. XYZAL [Concomitant]
     Route: 048
     Dates: start: 20100915, end: 20100929
  19. MYCOPHENOLATE MOFETIL [Suspect]
     Dosage: ROUTE REPORTED AS PER OS.
     Route: 048
     Dates: start: 20100511
  20. DIFFU K [Concomitant]
     Route: 048
     Dates: start: 20100628, end: 20100930
  21. INIPOMP [Concomitant]
     Dosage: REPORTED AS QD.
     Route: 048
     Dates: start: 20100512
  22. NOVORAPID [Concomitant]
     Route: 058
  23. PROGRAF [Concomitant]
     Route: 048
  24. ELISOR [Concomitant]
     Dosage: REPORTED AS QD.
     Route: 048
     Dates: start: 20100522
  25. DIFFU K [Concomitant]
     Dosage: TDD: 6 DOSES
     Route: 048
     Dates: start: 20100626
  26. MAG 2 [Concomitant]
     Dosage: TDD: 2 DOSES
     Dates: start: 20100702
  27. CORTANCYL [Suspect]
     Route: 048
     Dates: start: 20101002
  28. BICARBONATE DE SODIUM [Concomitant]
     Route: 048
     Dates: start: 20100712
  29. NOVORAPID [Concomitant]
     Route: 058
     Dates: start: 20100721, end: 20101001
  30. EPREX [Concomitant]
     Route: 058
     Dates: start: 20100803
  31. NOVOMIX [Concomitant]
     Route: 058
     Dates: start: 20100811, end: 20100906

REACTIONS (2)
  - TRANSPLANT REJECTION [None]
  - ESCHERICHIA SEPSIS [None]
